FAERS Safety Report 25540109 (Version 1)
Quarter: 2025Q3

REPORT INFORMATION
  Report Type: Spontaneous
  Country: EU (occurrence: EU)
  Receive Date: 20250710
  Receipt Date: 20250710
  Transmission Date: 20251021
  Serious: Yes (Death, Other)
  Sender: AMGEN
  Company Number: EU-AMGEN-ITASP2025131089

PATIENT

DRUGS (1)
  1. USTEKINUMAB [Suspect]
     Active Substance: USTEKINUMAB
     Indication: Takayasu^s arteritis
     Route: 065

REACTIONS (15)
  - Death [Fatal]
  - Vascular dissection [Unknown]
  - Mycobacterial infection [Unknown]
  - Myocardial ischaemia [Unknown]
  - Type 2 diabetes mellitus [Unknown]
  - Osteoporotic fracture [Unknown]
  - Ischaemic stroke [Unknown]
  - Pulmonary embolism [Unknown]
  - Arterial occlusive disease [Unknown]
  - Aneurysm [Unknown]
  - Bacterial infection [Unknown]
  - Fungal infection [Unknown]
  - Hypertension [Unknown]
  - Varicella zoster virus infection [Unknown]
  - Off label use [Unknown]
